FAERS Safety Report 5736203-3 (Version None)
Quarter: 2008Q2

REPORT INFORMATION
  Report Type: 
  Country: None (occurrence: None)
  Receive Date: 20080509
  Receipt Date: 20080509
  Transmission Date: 20081010
  Serious: Yes (Other)
  Sender: FDA-Public Use
  Company Number: None

PATIENT
  Sex: Female
  Weight: 68.0396 kg

DRUGS (1)
  1. CREST PRO-HEALTH RINSE P+G [Suspect]
     Indication: BREATH ODOUR
     Dosage: A COUPLE OUNCES ALMOST DAILY PO
     Route: 048
     Dates: start: 20070101, end: 20080401

REACTIONS (3)
  - BURNING SENSATION [None]
  - CHEILITIS [None]
  - IRRITABILITY [None]
